FAERS Safety Report 5981365-6 (Version None)
Quarter: 2008Q4

REPORT INFORMATION
  Report Type: 
  Country: None (occurrence: None)
  Receive Date: 20081126
  Receipt Date: 20081117
  Transmission Date: 20090506
  Serious: Yes (Other)
  Sender: FDA-Public Use
  Company Number: STI-2008-03534

PATIENT
  Age: 27 Year
  Sex: Female

DRUGS (1)
  1. 516A SF194/05 DUAC ONCE DAILY GEL (CLINDAMYCIN + BENZOYL PEROXIDE) (BE [Suspect]
     Indication: ACNE
     Dosage: APPLIED ONLY ONCE IN THE EVENING
     Dates: start: 20081116, end: 20081116

REACTIONS (3)
  - ERYTHEMA [None]
  - PRURITUS [None]
  - URTICARIA [None]
